FAERS Safety Report 8273131-6 (Version None)
Quarter: 2012Q2

REPORT INFORMATION
  Report Type: 
  Country: None (occurrence: None)
  Receive Date: 20120411
  Receipt Date: 20120405
  Transmission Date: 20120825
  Serious: Yes (Other)
  Sender: FDA-Public Use
  Company Number: US-UCBSA-054879

PATIENT
  Age: 18 Year
  Sex: Female

DRUGS (4)
  1. VIMPAT [Suspect]
     Dates: start: 20120201, end: 20120101
  2. CLONAZEPAM [Concomitant]
  3. VIMPAT [Suspect]
     Indication: CONVULSION
  4. TRILEPTAL [Concomitant]

REACTIONS (2)
  - CONVULSION [None]
  - CONDITION AGGRAVATED [None]
